FAERS Safety Report 5004100-7 (Version None)
Quarter: 2006Q2

REPORT INFORMATION
  Report Type: 
  Country: None (occurrence: None)
  Receive Date: 20060511
  Receipt Date: 20060502
  Transmission Date: 20061013
  Serious: Yes (Congenital Anomaly)
  Sender: FDA-Public Use
  Company Number: 2006021998

PATIENT

DRUGS (7)
  1. VIRACEPT [Suspect]
     Indication: HIV TEST POSITIVE
     Dosage: 300 MG, ORAL
     Route: 048
     Dates: start: 20051017
  2. NORVIR [Suspect]
     Indication: HIV TEST POSITIVE
     Dosage: 100 MG, ORAL
     Route: 048
     Dates: end: 20051017
  3. REYATAZ [Suspect]
     Indication: HIV TEST POSITIVE
     Dosage: 30 MG, ORAL
     Route: 048
     Dates: end: 20051017
  4. TRUVADA [Suspect]
     Indication: HIV TEST POSITIVE
     Dosage: 150 MG, ORAL
     Route: 048
     Dates: end: 20051017
  5. COMBIVIR [Suspect]
     Indication: HIV TEST POSITIVE
     Dosage: ORAL
     Route: 048
     Dates: start: 20051017
  6. AZT [Suspect]
     Indication: HIV TEST POSITIVE
     Dates: start: 20051017
  7. LAMIVUDINE [Suspect]
     Indication: HIV TEST POSITIVE
     Dates: start: 20051017

REACTIONS (3)
  - DRUG EXPOSURE DURING PREGNANCY [None]
  - POLYDACTYLY [None]
  - PREGNANCY [None]
